FAERS Safety Report 10882624 (Version 1)
Quarter: 2015Q1

REPORT INFORMATION
  Report Type: Spontaneous
  Country: US (occurrence: None)
  Receive Date: 20150225
  Receipt Date: 20150225
  Transmission Date: 20150721
  Serious: Yes (Other)
  Sender: FDA-Public Use
  Company Number: None

PATIENT
  Age: 58 Year
  Sex: Female
  Weight: 68.04 kg

DRUGS (1)
  1. PREMARIN [Suspect]
     Active Substance: ESTROGENS, CONJUGATED
     Indication: ATROPHIC VULVOVAGINITIS
     Dosage: 0.5 VAGINALLY FOR 2 WEEKS DECREASED TO TWO TIMES A WEEK
     Route: 067
     Dates: start: 20150121, end: 20150125

REACTIONS (3)
  - Vaginal haemorrhage [None]
  - Burning sensation [None]
  - Muscle spasms [None]

NARRATIVE: CASE EVENT DATE: 20150115
